FAERS Safety Report 4678351-5 (Version None)
Quarter: 2005Q2

REPORT INFORMATION
  Report Type: 
  Country: None (occurrence: None)
  Receive Date: 20050527
  Receipt Date: 20050518
  Transmission Date: 20051028
  Serious: Yes (Other)
  Sender: FDA-Public Use
  Company Number: 2005058922

PATIENT
  Age: 55 Year
  Sex: Female

DRUGS (2)
  1. BEXTRA [Suspect]
     Indication: SHOULDER PAIN
     Dosage: 20 MG (20 MG, 1 IN 1 D), ORAL
     Route: 048
     Dates: start: 20041201, end: 20050406
  2. PURAN T4 (LEVOTHYROXINE SODIUM) [Concomitant]

REACTIONS (4)
  - ERYTHEMA [None]
  - SHOULDER PAIN [None]
  - TENDONITIS [None]
  - URTICARIA [None]
